FAERS Safety Report 24739524 (Version 1)
Quarter: 2024Q4

REPORT INFORMATION
  Report Type: Spontaneous
  Country: US (occurrence: US)
  Receive Date: 20241216
  Receipt Date: 20241216
  Transmission Date: 20250114
  Serious: No
  Sender: CALLIDITAS THERAPEUTICS AB
  Company Number: US-Calliditas-2024CAL02893

PATIENT
  Age: 46 Year
  Sex: Male

DRUGS (3)
  1. TARPEYO [Suspect]
     Active Substance: BUDESONIDE
     Indication: IgA nephropathy
     Route: 048
  2. LASIX [Concomitant]
     Active Substance: FUROSEMIDE
  3. JARDIANCE [Concomitant]
     Active Substance: EMPAGLIFLOZIN

REACTIONS (5)
  - Blood pressure increased [Unknown]
  - Fluid retention [Unknown]
  - Blister [Unknown]
  - Weight increased [Unknown]
  - Abdominal discomfort [Unknown]
